FAERS Safety Report 18217734 (Version 1)
Quarter: 2020Q3

REPORT INFORMATION
  Report Type: Spontaneous
  Country: VN (occurrence: VN)
  Receive Date: 20200901
  Receipt Date: 20200901
  Transmission Date: 20201103
  Serious: Yes (Other)
  Sender: FDA-Public Use
  Company Number: NVSC2020VN239596

PATIENT
  Age: 59 Year
  Sex: Male

DRUGS (3)
  1. CAPECITABINE. [Suspect]
     Active Substance: CAPECITABINE
     Indication: GASTRIC CANCER
     Dosage: UNK
     Route: 065
  2. EPIRUBICIN [Suspect]
     Active Substance: EPIRUBICIN
     Indication: GASTRIC CANCER
     Dosage: UNK
     Route: 065
  3. OXALIPLATIN. [Suspect]
     Active Substance: OXALIPLATIN
     Indication: GASTRIC CANCER
     Dosage: UNK
     Route: 065

REACTIONS (3)
  - Malignant neoplasm progression [Unknown]
  - Gastric cancer [Unknown]
  - Product use in unapproved indication [Unknown]
